FAERS Safety Report 5132217-5 (Version None)
Quarter: 2006Q4

REPORT INFORMATION
  Report Type: 
  Country: None (occurrence: None)
  Receive Date: 20061017
  Receipt Date: 20061002
  Transmission Date: 20070319
  Serious: Yes (Life-Threatening, Hospitalization, Other)
  Sender: FDA-Public Use
  Company Number: ENT 2006-0102

PATIENT
  Age: 57 Year
  Sex: Male
  Weight: 70.29 kg

DRUGS (4)
  1. COMTAN [Suspect]
     Indication: PARKINSON'S DISEASE
     Dosage: 200 MG QD
     Dates: start: 20060106, end: 20060612
  2. SELEGILINE HCL [Concomitant]
  3. SINEMET [Concomitant]
  4. PARCOPA [Concomitant]

REACTIONS (10)
  - BLISTER [None]
  - CHROMATURIA [None]
  - DRUG HYPERSENSITIVITY [None]
  - EOSINOPHILIC PNEUMONIA [None]
  - HYPERHIDROSIS [None]
  - IATROGENIC INJURY [None]
  - MUSCULAR WEAKNESS [None]
  - PNEUMOTHORAX [None]
  - PROCEDURAL COMPLICATION [None]
  - URINE ODOUR ABNORMAL [None]
